FAERS Safety Report 5101465-2 (Version None)
Quarter: 2006Q3

REPORT INFORMATION
  Report Type: 
  Country: None (occurrence: None)
  Receive Date: 20060911
  Receipt Date: 20020701
  Transmission Date: 20061208
  Serious: Yes (Death, Life-Threatening, Hospitalization)
  Sender: FDA-Public Use
  Company Number: GB-MERCK-0207USA00098

PATIENT
  Age: 80 Year
  Sex: Male
  Weight: 75 kg

DRUGS (8)
  1. PRINIVIL [Suspect]
     Indication: CARDIAC FAILURE CONGESTIVE
     Route: 048
     Dates: start: 19990101, end: 20020613
  2. BURINEX A [Suspect]
     Indication: CARDIAC FAILURE CONGESTIVE
     Route: 048
     Dates: start: 20020525, end: 20020613
  3. DICLOFENAC [Suspect]
     Indication: PAIN IN EXTREMITY
     Route: 048
     Dates: end: 20020613
  4. QUININE SULFATE [Concomitant]
     Route: 048
     Dates: start: 20010315, end: 20020612
  5. ACETAMINOPHEN AND CODEINE [Concomitant]
     Route: 048
     Dates: end: 20020612
  6. ASPIRIN [Concomitant]
     Route: 048
     Dates: end: 20020612
  7. LANSOPRAZOLE [Concomitant]
     Route: 048
     Dates: end: 20020612
  8. BISOPROLOL [Concomitant]
     Route: 048
     Dates: start: 20020411, end: 20020425

REACTIONS (5)
  - CARDIAC ARREST [None]
  - DEHYDRATION [None]
  - PNEUMONIA [None]
  - RENAL FAILURE [None]
  - VOMITING [None]
